FAERS Safety Report 15224975 (Version 1)
Quarter: 2018Q3

REPORT INFORMATION
  Report Type: Spontaneous
  Country: DK (occurrence: DK)
  Receive Date: 20180801
  Receipt Date: 20180801
  Transmission Date: 20181010
  Serious: Yes (Hospitalization)
  Sender: FDA-Public Use
  Company Number: DK-AMGEN-DNKSP2018102203

PATIENT
  Age: 73 Year
  Sex: Female

DRUGS (10)
  1. PARACETAMOL [Concomitant]
     Active Substance: ACETAMINOPHEN
     Indication: PAIN
     Dosage: 500 MG. DOSE: 2 TABLETS WHEN NEEDED, MAXIMUM 4 TIMES PER DAY
     Route: 048
  2. GLYCERYLNITRAT [Concomitant]
     Indication: CHEST PAIN
     Dosage: 0,4 MG/DOSE. DOSE: 1 INHALATION WHEN NEEDED
     Route: 060
  3. TRIAZOLAM. [Concomitant]
     Active Substance: TRIAZOLAM
     Indication: INSOMNIA
     Dosage: 0,25 MG. DOSE: 1/2 TABLET WHEN NEEDED
     Route: 048
  4. KETOCONAZOLE. [Concomitant]
     Active Substance: KETOCONAZOLE
     Indication: DANDRUFF
     Dosage: 2%. DOSE: USE 2 TIMES PER WEEK
     Dates: start: 20170607
  5. ISOSORBIDE MONONITRATE. [Concomitant]
     Active Substance: ISOSORBIDE MONONITRATE
     Indication: ANGINA PECTORIS
     Dosage: 60 MG, UNK
     Route: 048
     Dates: start: 20170925
  6. DILTIAZEM. [Concomitant]
     Active Substance: DILTIAZEM
     Indication: ANGINA PECTORIS
     Dosage: 180 MG, UNK
     Route: 048
     Dates: start: 20170508
  7. XGEVA [Suspect]
     Active Substance: DENOSUMAB
     Indication: BLOOD CALCIUM INCREASED
     Dosage: 120 MG, UNK
     Route: 058
  8. DICLOFENAC [Concomitant]
     Active Substance: DICLOFENAC
     Indication: PAIN
     Dosage: 50 MG. DOSE: 1 TABLET WHEN NEEDED APPROXIMATELY 3 TIMES PER DAY
     Route: 048
  9. MORPHINE [Concomitant]
     Active Substance: MORPHINE
     Indication: PAIN
     Dosage: 10 MG. DOSE 1 TABLET WHEN NEEDED, MAXIMUM 6 TIMES PER DAY
     Route: 048
  10. MOMETASONE [Concomitant]
     Active Substance: MOMETASONE
     Indication: ECZEMA
     Dosage: 0,1%. DOSE: APPLIED ACCORDING TO AGREEMENT

REACTIONS (6)
  - Jaw fistula [Unknown]
  - Jaw operation [Unknown]
  - Purulence [Unknown]
  - Osteonecrosis of jaw [Unknown]
  - Bone loss [Unknown]
  - Loose tooth [Unknown]

NARRATIVE: CASE EVENT DATE: 201801
